FAERS Safety Report 4439728-6 (Version None)
Quarter: 2004Q3

REPORT INFORMATION
  Report Type: 
  Country: None (occurrence: None)
  Receive Date: 20040901
  Receipt Date: 20040901
  Transmission Date: 20050211
  Serious: Yes (Other)
  Sender: FDA-Public Use
  Company Number: None

PATIENT
  Age: 34 Year
  Sex: Female
  Weight: 131.5431 kg

DRUGS (1)
  1. METHOTREXATE [Suspect]
     Dosage: 15 MG WEEK ORAL
     Route: 048
     Dates: start: 20020909, end: 20040201

REACTIONS (1)
  - HYPOGLYCAEMIA [None]
